FAERS Safety Report 6310858-7 (Version None)
Quarter: 2009Q3

REPORT INFORMATION
  Report Type: 
  Country: None (occurrence: None)
  Receive Date: 20090805
  Receipt Date: 20090727
  Transmission Date: 20100115
  Serious: Yes (Other)
  Sender: FDA-Public Use
  Company Number: 09-008

PATIENT
  Age: 44 Year
  Sex: Female

DRUGS (2)
  1. PRESCRIPTION MIX 1:50 W/V (POLLENS/TREES) [Suspect]
     Indication: HYPERSENSITIVITY
     Dosage: SUBCUTANEOUS
     Route: 058
     Dates: start: 20090601, end: 20090701
  2. PRESCRIPTION MIX 1:50 W/V (POLLENS/TREES) [Suspect]

REACTIONS (1)
  - INJECTION SITE ANAESTHESIA [None]
